FAERS Safety Report 5419745-X (Version None)
Quarter: 2007Q3

REPORT INFORMATION
  Report Type: 
  Country: None (occurrence: None)
  Receive Date: 20070718
  Receipt Date: 20061211
  Transmission Date: 20080115
  Serious: Yes (Hospitalization, Other)
  Sender: FDA-Public Use
  Company Number: 2006108473

PATIENT
  Age: 44 Year
  Sex: Male
  Weight: 95.3 kg

DRUGS (5)
  1. CELEBREX [Suspect]
     Indication: PAIN MANAGEMENT
     Dosage: 400 MG (200 MG, 2 IN 1 D), ORAL
     Route: 048
     Dates: start: 20040630, end: 20040706
  2. ADVIL [Concomitant]
  3. ALEVE [Concomitant]
  4. CODEINE SUL TAB [Concomitant]
  5. ACETAMINOPHEN [Concomitant]

REACTIONS (1)
  - PULMONARY EMBOLISM [None]
